FAERS Safety Report 8631825 (Version 2)
Quarter: 2012Q4

REPORT INFORMATION
  Report Type: 
  Country: FR (occurrence: FR)
  Receive Date: 20120625
  Receipt Date: 20120904
  Transmission Date: 20130627
  Serious: No
  Sender: FDA-Public Use
  Company Number: FR-JNJFOC-20120606513

PATIENT
  Age: 85 Year
  Sex: Female

DRUGS (2)
  1. DUROGESIC [Suspect]
     Indication: WOUND
     Dosage: DUROGESIC* was initiated for approximately 1 month and half
     Route: 062
     Dates: end: 201206
  2. DUROGESIC [Suspect]
     Indication: WOUND
     Route: 062
     Dates: start: 201206

REACTIONS (4)
  - Hypersensitivity [Recovered/Resolved]
  - Wrong technique in drug usage process [Recovered/Resolved]
  - Wrong technique in drug usage process [Recovered/Resolved]
  - Product quality issue [Recovered/Resolved]
